FAERS Safety Report 4382494-3 (Version None)
Quarter: 2004Q2

REPORT INFORMATION
  Report Type: 
  Country: None (occurrence: None)
  Receive Date: 20040617
  Receipt Date: 20040614
  Transmission Date: 20050107
  Serious: Yes (Death, Hospitalization)
  Sender: FDA-Public Use
  Company Number: CH-2004-025211

PATIENT
  Age: 34 Year
  Sex: Female
  Weight: 100 kg

DRUGS (1)
  1. MIRENA [Suspect]
     Indication: CONTRACEPTION
     Dosage: 20 UG/DAY, CONT, INTRA-UTERINE
     Route: 015
     Dates: start: 20031101

REACTIONS (7)
  - BASILAR ARTERY THROMBOSIS [None]
  - BRAIN OEDEMA [None]
  - CEREBRAL INFARCTION [None]
  - GLIOBLASTOMA [None]
  - HEADACHE [None]
  - PSYCHOSOMATIC DISEASE [None]
  - VOMITING [None]
